FAERS Safety Report 8958139 (Version 1)
Quarter: 2012Q4

REPORT INFORMATION
  Report Type: 
  Country: US (occurrence: US)
  Receive Date: 20121211
  Receipt Date: 20121211
  Transmission Date: 20130627
  Serious: Yes (Death, Hospitalization)
  Sender: FDA-Public Use
  Company Number: US-JNJFOC-2000024069US

PATIENT
  Age: 31 Year
  Sex: Female

DRUGS (2)
  1. MOTRIN [Suspect]
     Indication: OVERDOSE
  2. VERAPAMIL [Suspect]
     Indication: OVERDOSE
     Route: 048

REACTIONS (13)
  - Completed suicide [Fatal]
  - Vomiting [Unknown]
  - Abdominal pain [Unknown]
  - Hypokalaemia [Fatal]
  - Atrioventricular block complete [Fatal]
  - Hypotension [Fatal]
  - Acidosis [Fatal]
  - Bradycardia [Fatal]
  - Cardio-respiratory arrest [Fatal]
  - Agitation [None]
  - Incorrect dose administered [None]
  - Metabolic acidosis [None]
  - Respiratory acidosis [None]
